FAERS Safety Report 24369876 (Version 2)
Quarter: 2024Q4

REPORT INFORMATION
  Report Type: Spontaneous
  Country: JP (occurrence: JP)
  Receive Date: 20240927
  Receipt Date: 20241021
  Transmission Date: 20250115
  Serious: Yes (Other)
  Sender: ROCHE
  Company Number: JP-CHUGAI-2024031210

PATIENT
  Age: 8 Decade
  Sex: Female

DRUGS (2)
  1. AVASTIN [Suspect]
     Active Substance: BEVACIZUMAB
     Indication: Ovarian cancer
     Dosage: UNK
     Route: 042
     Dates: start: 20240320
  2. PACLITAXEL [Suspect]
     Active Substance: PACLITAXEL
     Indication: Ovarian cancer
     Dosage: UNK
     Route: 042
     Dates: start: 20240320

REACTIONS (3)
  - Electrolyte imbalance [Unknown]
  - IIIrd nerve paralysis [Not Recovered/Not Resolved]
  - Epilepsy [Unknown]

NARRATIVE: CASE EVENT DATE: 20240716
